FAERS Safety Report 9416915 (Version 1)
Quarter: 2013Q3

REPORT INFORMATION
  Report Type: Spontaneous
  Country: US (occurrence: None)
  Receive Date: 20130722
  Receipt Date: 20130722
  Transmission Date: 20140515
  Serious: Yes (Other)
  Sender: FDA-Public Use
  Company Number: VAL_02648_2013

PATIENT
  Age: 89 Year
  Sex: Female

DRUGS (8)
  1. METOPROLOL [Suspect]
     Indication: HYPERTENSION
     Route: 048
     Dates: start: 20080227
  2. FOSINOPRIL [Suspect]
     Indication: HYPERTENSION
     Route: 048
     Dates: start: 20060726
  3. AMLODIPINE [Suspect]
     Indication: HYPERTENSION
     Route: 048
     Dates: start: 20060830
  4. DOXAZOSIN [Suspect]
     Indication: HYPERTENSION
     Route: 048
     Dates: start: 20080616
  5. SPIRONOLACTONE [Suspect]
     Indication: HYPERTENSION
     Dates: start: 20081015
  6. HYDROCHLOROTHIAZIDE W/OLMESARTAN MEDOXOMIL [Concomitant]
     Indication: HYPERTENSION
     Dates: start: 20090204
  7. ATORVASTATIN [Concomitant]
  8. GLIPIZIDE XL [Concomitant]

REACTIONS (3)
  - Orthostatic hypotension [None]
  - Hyperkalaemia [None]
  - Renal failure [None]
